FAERS Safety Report 7791490-5 (Version None)
Quarter: 2011Q4

REPORT INFORMATION
  Report Type: 
  Country: None (occurrence: None)
  Receive Date: 20111003
  Receipt Date: 20110920
  Transmission Date: 20120403
  Serious: Yes (Hospitalization)
  Sender: FDA-Public Use
  Company Number: GB-JNJFOC-20110912062

PATIENT
  Age: 37 Year
  Sex: Female

DRUGS (2)
  1. NITRAZEPAM [Concomitant]
     Route: 065
  2. TRAMADOL HCL [Suspect]
     Indication: HEADACHE
     Dosage: 2 G ONCE
     Route: 048

REACTIONS (8)
  - ATRIOVENTRICULAR BLOCK FIRST DEGREE [None]
  - PULMONARY HYPERTENSION [None]
  - RHABDOMYOLYSIS [None]
  - OVERDOSE [None]
  - BLOOD POTASSIUM INCREASED [None]
  - ALANINE AMINOTRANSFERASE INCREASED [None]
  - SEROTONIN SYNDROME [None]
  - RIGHT VENTRICULAR FAILURE [None]
